FAERS Safety Report 25946024 (Version 2)
Quarter: 2025Q4

REPORT INFORMATION
  Report Type: Report from Study
  Country: US (occurrence: US)
  Receive Date: 20251021
  Receipt Date: 20251028
  Transmission Date: 20260118
  Serious: Yes (Other)
  Sender: ABBVIE
  Company Number: US-ABBVIE-6510866

PATIENT
  Age: 61 Year
  Sex: Male
  Weight: 102.05 kg

DRUGS (1)
  1. RINVOQ [Suspect]
     Active Substance: UPADACITINIB
     Indication: Crohn^s disease
     Dosage: 30 MILLIGRAM
     Route: 048
     Dates: start: 20231108

REACTIONS (2)
  - Colostomy [Unknown]
  - Anorectal swelling [Not Recovered/Not Resolved]

NARRATIVE: CASE EVENT DATE: 20240101
